FAERS Safety Report 4874311-X (Version None)
Quarter: 2005Q4

REPORT INFORMATION
  Report Type: 
  Country: None (occurrence: None)
  Receive Date: 20051201
  Receipt Date: 20050811
  Transmission Date: 20060501
  Serious: No
  Sender: FDA-Public Use
  Company Number: 2005PV001019

PATIENT
  Age: 55 Year
  Sex: Female
  Weight: 116.5744 kg

DRUGS (14)
  1. BYETTA [Suspect]
     Indication: DIABETES MELLITUS NON-INSULIN-DEPENDENT
     Dosage: SEE IMAGE
     Route: 058
     Dates: start: 20050601, end: 20050701
  2. BYETTA [Suspect]
     Indication: DIABETES MELLITUS NON-INSULIN-DEPENDENT
     Dosage: SEE IMAGE
     Route: 058
     Dates: start: 20050701, end: 20050701
  3. BYETTA [Suspect]
     Indication: DIABETES MELLITUS NON-INSULIN-DEPENDENT
     Dosage: SEE IMAGE
     Route: 058
     Dates: start: 20050701
  4. GLUCOTROL XL [Concomitant]
  5. PRANDIN [Concomitant]
  6. ACTOS [Concomitant]
  7. SYNTHROID [Concomitant]
  8. EZETIMIBE [Concomitant]
  9. LISINOPRIL [Concomitant]
  10. TOPROL-XL [Concomitant]
  11. LASIX [Concomitant]
  12. MICRO-K [Concomitant]
  13. PLAVIX [Concomitant]
  14. ASPIRIN [Concomitant]

REACTIONS (2)
  - BLOOD GLUCOSE FLUCTUATION [None]
  - BLOOD URIC ACID INCREASED [None]
